FAERS Safety Report 15605500 (Version 1)
Quarter: 2018Q4

REPORT INFORMATION
  Report Type: Spontaneous
  Country: US (occurrence: US)
  Receive Date: 20181112
  Receipt Date: 20181112
  Transmission Date: 20190205
  Serious: No
  Sender: FDA-Public Use
  Company Number: US-SHIRE-US201843966

PATIENT
  Sex: Male

DRUGS (2)
  1. LIALDA [Suspect]
     Active Substance: MESALAMINE
     Indication: COLITIS MICROSCOPIC
     Dosage: UNK
     Route: 065
  2. LIALDA [Suspect]
     Active Substance: MESALAMINE
     Indication: OFF LABEL USE

REACTIONS (2)
  - Drug ineffective [Unknown]
  - Off label use [Unknown]
